FAERS Safety Report 5208849-2 (Version None)
Quarter: 2006Q4

REPORT INFORMATION
  Report Type: 
  Country: None (occurrence: None)
  Receive Date: 20061101
  Receipt Date: 20060713
  Transmission Date: 20070319
  Serious: No
  Sender: FDA-Public Use
  Company Number: 2006PV017517

PATIENT
  Age: 63 Year
  Sex: Male

DRUGS (4)
  1. SYMLIN [Suspect]
     Indication: DIABETES MELLITUS INSULIN-DEPENDENT
     Dosage: 78 MCG; SC
     Route: 058
  2. SYMLIN [Suspect]
     Dosage: 12 MCG; SC
     Route: 058
     Dates: start: 20060627
  3. HUMALOG [Concomitant]
  4. METFORMIN HCL [Concomitant]

REACTIONS (2)
  - ABDOMINAL DISTENSION [None]
  - BLOOD GLUCOSE FLUCTUATION [None]
